FAERS Safety Report 5644784-3 (Version None)
Quarter: 2008Q1

REPORT INFORMATION
  Report Type: 
  Country: None (occurrence: None)
  Receive Date: 20080229
  Receipt Date: 20070801
  Transmission Date: 20080703
  Serious: No
  Sender: FDA-Public Use
  Company Number: A0667685A

PATIENT
  Age: 2 Year
  Sex: Female

DRUGS (2)
  1. VALTREX [Suspect]
     Dosage: 500MG UNKNOWN
     Route: 048
     Dates: start: 20070801
  2. NO CONCURRENT MEDICATION [Concomitant]

REACTIONS (1)
  - ACCIDENTAL EXPOSURE [None]
